FAERS Safety Report 6882990-0 (Version None)
Quarter: 2010Q3

REPORT INFORMATION
  Report Type: 
  Country: None (occurrence: None)
  Receive Date: 20100727
  Receipt Date: 20100720
  Transmission Date: 20110219
  Serious: Yes (Hospitalization, Other)
  Sender: FDA-Public Use
  Company Number: US-AMGEN-QUU420902

PATIENT
  Sex: Male
  Weight: 68.6 kg

DRUGS (13)
  1. NPLATE [Suspect]
     Indication: IDIOPATHIC THROMBOCYTOPENIC PURPURA
     Route: 058
     Dates: start: 20090728, end: 20091124
  2. PREDNISONE [Concomitant]
     Route: 048
     Dates: start: 20090330
  3. CELEXA [Concomitant]
     Route: 048
  4. LOPRESSOR [Concomitant]
     Route: 048
  5. IRON [Concomitant]
     Route: 048
  6. COUMADIN [Concomitant]
  7. AMBIEN [Concomitant]
     Route: 048
  8. OMEPRAZOLE [Concomitant]
  9. VITAMIN A [Concomitant]
  10. ASCORBIC ACID [Concomitant]
  11. VITAMIN E [Concomitant]
  12. VITAMIN B-12 [Concomitant]
     Route: 030
  13. ASPIRIN [Concomitant]

REACTIONS (10)
  - ABDOMINAL WALL HAEMATOMA [None]
  - ACUTE RESPIRATORY FAILURE [None]
  - DISSEMINATED INTRAVASCULAR COAGULATION [None]
  - HERNIA REPAIR [None]
  - HYPOTENSION [None]
  - OPERATIVE HAEMORRHAGE [None]
  - RENAL FAILURE ACUTE [None]
  - RENAL TUBULAR NECROSIS [None]
  - SKIN CANCER [None]
  - THROMBOCYTOPENIA [None]
